FAERS Safety Report 5537001-6 (Version None)
Quarter: 2007Q4

REPORT INFORMATION
  Report Type: 
  Country: None (occurrence: None)
  Receive Date: 20071207
  Receipt Date: 20071127
  Transmission Date: 20080405
  Serious: Yes (Hospitalization)
  Sender: FDA-Public Use
  Company Number: US-JNJFOC-20071110321

PATIENT
  Sex: Female

DRUGS (6)
  1. DURAGESIC-100 [Suspect]
     Indication: PAIN
     Route: 062
  2. SEROQUEL [Concomitant]
     Dosage: 4 AT BEDTIME
     Route: 048
  3. SEROQUEL [Concomitant]
     Indication: AFFECTIVE DISORDER
     Dosage: 1 IN AM
     Route: 048
  4. KLONOPIN [Concomitant]
     Indication: ANXIETY
     Route: 048
  5. LORTAB [Concomitant]
     Indication: PAIN
     Route: 048
  6. AMBIEN CR [Concomitant]
     Indication: SLEEP DISORDER
     Route: 048

REACTIONS (5)
  - ARTHRITIS INFECTIVE [None]
  - CORONARY ARTERY OCCLUSION [None]
  - DRUG ADMINISTERED AT INAPPROPRIATE SITE [None]
  - INAPPROPRIATE SCHEDULE OF DRUG ADMINISTRATION [None]
  - WRONG TECHNIQUE IN DRUG USAGE PROCESS [None]
